FAERS Safety Report 22029401 (Version 2)
Quarter: 2023Q1

REPORT INFORMATION
  Report Type: Spontaneous
  Country: TH (occurrence: TH)
  Receive Date: 20230223
  Receipt Date: 20230224
  Transmission Date: 20230418
  Serious: Yes (Other)
  Sender: FDA-Public Use
  Company Number: TH-JNJFOC-20230237604

PATIENT

DRUGS (1)
  1. REMINYL [Suspect]
     Active Substance: GALANTAMINE
     Indication: Product used for unknown indication
     Route: 048

REACTIONS (2)
  - Parkinson^s disease [Unknown]
  - Dementia Alzheimer^s type [Unknown]
